FAERS Safety Report 6845246-8 (Version None)
Quarter: 2010Q3

REPORT INFORMATION
  Report Type: 
  Country: None (occurrence: None)
  Receive Date: 20100715
  Receipt Date: 20070818
  Transmission Date: 20110219
  Serious: No
  Sender: FDA-Public Use
  Company Number: US-PFIZER INC-2007068807

PATIENT
  Sex: Male
  Weight: 83.9 kg

DRUGS (13)
  1. CHANTIX [Suspect]
     Indication: SMOKING CESSATION THERAPY
     Dates: start: 20070601
  2. CEFUROXIME [Concomitant]
  3. GABAPENTIN [Concomitant]
  4. DARVOCET [Concomitant]
  5. XANAX [Concomitant]
  6. INDOMETHACIN [Concomitant]
  7. DILTIAZEM [Concomitant]
  8. ACTOS [Concomitant]
  9. ZOLOFT [Concomitant]
  10. FEXOFENADINE [Concomitant]
  11. ZETIA [Concomitant]
  12. ALL OTHER THERAPEUTIC PRODUCTS [Concomitant]
  13. SPIRONOLACTONE [Concomitant]

REACTIONS (1)
  - DYSGEUSIA [None]
